FAERS Safety Report 5165630-0 (Version None)
Quarter: 2006Q4

REPORT INFORMATION
  Report Type: 
  Country: None (occurrence: None)
  Receive Date: 20061206
  Receipt Date: 20061122
  Transmission Date: 20070319
  Serious: Yes (Hospitalization)
  Sender: FDA-Public Use
  Company Number: US-BRISTOL-MYERS SQUIBB COMPANY-13587019

PATIENT
  Age: 73 Year
  Sex: Male
  Weight: 83 kg

DRUGS (9)
  1. CETUXIMAB [Suspect]
     Indication: COLORECTAL CANCER METASTATIC
     Dates: start: 20061101, end: 20061101
  2. BEVACIZUMAB [Suspect]
     Indication: COLORECTAL CANCER METASTATIC
     Route: 042
     Dates: start: 20061101, end: 20061101
  3. FLUOROURACIL [Suspect]
     Indication: COLORECTAL CANCER METASTATIC
     Route: 042
     Dates: start: 20061101, end: 20061101
  4. LEUCOVORIN CALCIUM [Suspect]
     Indication: COLORECTAL CANCER METASTATIC
     Dates: start: 20061101, end: 20061101
  5. CORTISONE ACETATE [Concomitant]
  6. COUMADIN [Concomitant]
     Dates: start: 20060912
  7. CIPRO [Concomitant]
     Dates: start: 20061103
  8. PROSCAR [Concomitant]
     Dates: start: 20060918
  9. FLUDROCORTISONE [Concomitant]

REACTIONS (1)
  - GASTROENTERITIS [None]
